FAERS Safety Report 25075306 (Version 1)
Quarter: 2025Q1

REPORT INFORMATION
  Report Type: Spontaneous
  Country: US (occurrence: US)
  Receive Date: 20250313
  Receipt Date: 20250313
  Transmission Date: 20250409
  Serious: Yes (Disabling)
  Sender: MYLAN
  Company Number: US-MYLANLABS-2025M1018661

PATIENT
  Age: 54 Year
  Sex: Male

DRUGS (1)
  1. XANAX [Suspect]
     Active Substance: ALPRAZOLAM
     Indication: Product used for unknown indication

REACTIONS (2)
  - Disability [Unknown]
  - Treatment noncompliance [Unknown]
